FAERS Safety Report 25703273 (Version 2)
Quarter: 2025Q3

REPORT INFORMATION
  Report Type: Report from Study
  Country: CA (occurrence: CA)
  Receive Date: 20250820
  Receipt Date: 20250926
  Transmission Date: 20251020
  Serious: Yes (Other)
  Sender: ABBVIE
  Company Number: CA-ABBVIE-6416209

PATIENT
  Age: 82 Year
  Sex: Male

DRUGS (84)
  1. VENETOCLAX [Suspect]
     Active Substance: VENETOCLAX
     Indication: Acute myeloid leukaemia
     Dosage: END OF CYCLE
     Route: 048
     Dates: start: 20241216, end: 20241229
  2. VENETOCLAX [Suspect]
     Active Substance: VENETOCLAX
     Indication: Acute myeloid leukaemia
     Dosage: ADVERSE EVENT, WITHDRAWAL, FEBRILE NEUTROPENIA, THROMBOCYTOPENIA, GI EFFECTS, PALLIATIVE CARE
     Route: 048
     Dates: start: 20250210, end: 20250216
  3. VENETOCLAX [Suspect]
     Active Substance: VENETOCLAX
     Indication: Acute myeloid leukaemia
     Dosage: DOSE REDUCTION DOSE CHANGE/INTERRUPTION CONCOMITANT USE OF STRONG OR MODERATE CYP3A MODERATOR (OT...
     Route: 048
     Dates: start: 20240923, end: 20240923
  4. VENETOCLAX [Suspect]
     Active Substance: VENETOCLAX
     Indication: Acute myeloid leukaemia
     Dosage: DOSE INCREASE DOSE CHANGE/INTERRUPTION OTHER (IF OTHER, SPECIFY: SITE PRACTICE TO RX AS A RAMP UP...
     Route: 048
     Dates: start: 20240924, end: 20240924
  5. VENETOCLAX [Suspect]
     Active Substance: VENETOCLAX
     Indication: Acute myeloid leukaemia
     Dosage: DOSE INCREASE ADVERSE EVENT, DOSE CHANGE/INTERRUPTION, INFECTION OTHER (IF OTHER, ?SPECIFY: SITE ...
     Route: 048
     Dates: start: 20240925, end: 20241018
  6. VENETOCLAX [Suspect]
     Active Substance: VENETOCLAX
     Indication: Acute myeloid leukaemia
     Dosage: END OF CYCLE OTHER (IF OTHER, SPECIFY: NO SOURCE DATA AVAILABLE THAT SPECIFIES REASON FOR DAY RED...
     Route: 048
     Dates: start: 20241104, end: 20241124
  7. VENETOCLAX [Suspect]
     Active Substance: VENETOCLAX
     Indication: Acute myeloid leukaemia
     Route: 048
     Dates: start: 20241018, end: 20241031
  8. INFLUENZA VIRUS VACCINE [Concomitant]
     Active Substance: INFLUENZA VIRUS VACCINE
     Indication: Prophylaxis
     Route: 030
     Dates: start: 20241116, end: 20241116
  9. ALLOPURINOL [Concomitant]
     Active Substance: ALLOPURINOL
     Indication: Arthritis
     Route: 048
  10. TAMSULOSIN [Concomitant]
     Active Substance: TAMSULOSIN
     Indication: Benign prostatic hyperplasia
     Route: 048
  11. TRAZODONE [Concomitant]
     Active Substance: TRAZODONE HYDROCHLORIDE
     Indication: Insomnia
     Route: 048
  12. DICLOFENAC [Concomitant]
     Active Substance: DICLOFENAC
     Indication: Arthralgia
  13. FLUCONAZOLE [Concomitant]
     Active Substance: FLUCONAZOLE
     Indication: Antifungal prophylaxis
     Route: 048
     Dates: start: 20240923, end: 20241027
  14. FLUCONAZOLE [Concomitant]
     Active Substance: FLUCONAZOLE
     Indication: Antifungal prophylaxis
     Route: 048
     Dates: start: 20241105, end: 20250228
  15. VALACYCLOVIR [Concomitant]
     Active Substance: VALACYCLOVIR HYDROCHLORIDE
     Indication: Antiviral prophylaxis
     Route: 048
     Dates: start: 20240923, end: 20250228
  16. RANITIDINE [Concomitant]
     Active Substance: RANITIDINE
     Indication: Gastrointestinal disorder prophylaxis
     Route: 048
     Dates: start: 20240923, end: 20250228
  17. CIPROFLOXACIN [Concomitant]
     Active Substance: CIPROFLOXACIN
     Indication: Antibiotic prophylaxis
     Route: 048
     Dates: start: 20240923, end: 20241027
  18. DEXAMETHASONE [Concomitant]
     Active Substance: DEXAMETHASONE
     Indication: Prophylaxis of nausea and vomiting
     Route: 048
     Dates: start: 20240923, end: 20240923
  19. DEXAMETHASONE [Concomitant]
     Active Substance: DEXAMETHASONE
     Indication: Prophylaxis of nausea and vomiting
     Route: 048
     Dates: start: 20241104, end: 20241104
  20. DEXAMETHASONE [Concomitant]
     Active Substance: DEXAMETHASONE
     Indication: Prophylaxis of nausea and vomiting
     Route: 048
     Dates: start: 20241216, end: 20241216
  21. ONDANSETRON [Concomitant]
     Active Substance: ONDANSETRON
     Indication: Prophylaxis of nausea and vomiting
     Route: 048
     Dates: start: 20240923, end: 20241002
  22. ONDANSETRON [Concomitant]
     Active Substance: ONDANSETRON
     Indication: Prophylaxis of nausea and vomiting
     Dosage: PRN
     Route: 048
     Dates: start: 20241003
  23. ONDANSETRON [Concomitant]
     Active Substance: ONDANSETRON
     Indication: Prophylaxis of nausea and vomiting
     Route: 048
     Dates: start: 20241104, end: 20241108
  24. ONDANSETRON [Concomitant]
     Active Substance: ONDANSETRON
     Indication: Prophylaxis of nausea and vomiting
     Dosage: 4-8MG
     Route: 042
     Dates: start: 20241130, end: 20241201
  25. ONDANSETRON [Concomitant]
     Active Substance: ONDANSETRON
     Indication: Prophylaxis of nausea and vomiting
     Route: 048
     Dates: start: 20241216, end: 20241220
  26. ACETAMINOPHEN\CAFFEINE\CODEINE [Concomitant]
     Active Substance: ACETAMINOPHEN\CAFFEINE\CODEINE
     Indication: Pain
     Dosage: PRN
     Route: 048
     Dates: start: 20241008
  27. HYDROMORPHONE [Concomitant]
     Active Substance: HYDROMORPHONE
     Indication: Pain
     Dosage: 1-2 MG PRN
     Route: 048
     Dates: start: 20241011
  28. Emolax [Concomitant]
     Indication: Constipation
     Dosage: PRN
     Route: 048
     Dates: start: 20241011
  29. CANDESARTAN [Concomitant]
     Active Substance: CANDESARTAN
     Indication: Hypertension
     Route: 048
     Dates: end: 20021028
  30. CANDESARTAN [Concomitant]
     Active Substance: CANDESARTAN
     Indication: Hypertension
     Route: 048
     Dates: start: 20241029
  31. FILGRASTIM [Concomitant]
     Active Substance: FILGRASTIM
     Indication: Full blood count abnormal
     Route: 058
     Dates: start: 20241129, end: 20241202
  32. FILGRASTIM [Concomitant]
     Active Substance: FILGRASTIM
     Indication: Full blood count abnormal
     Route: 058
     Dates: start: 20241213, end: 20241216
  33. FILGRASTIM [Concomitant]
     Active Substance: FILGRASTIM
     Indication: Full blood count abnormal
     Route: 058
     Dates: start: 20250109, end: 20250109
  34. FILGRASTIM [Concomitant]
     Active Substance: FILGRASTIM
     Indication: Full blood count abnormal
     Dosage: TWICE/WEEK SAT/TUES
     Route: 058
     Dates: start: 20250125, end: 20250204
  35. FILGRASTIM [Concomitant]
     Active Substance: FILGRASTIM
     Indication: Full blood count abnormal
     Route: 058
     Dates: start: 20250225, end: 20250228
  36. CALCIUM CHLORIDE\POTASSIUM CHLORIDE\SODIUM LACTATE [Concomitant]
     Active Substance: CALCIUM CHLORIDE\POTASSIUM CHLORIDE\SODIUM LACTATE
     Indication: Febrile neutropenia
     Route: 042
     Dates: start: 20241130
  37. ACETAMINOPHEN [Concomitant]
     Active Substance: ACETAMINOPHEN
     Indication: Pain
     Dosage: 325-650 MG PRN
     Route: 048
     Dates: start: 20241130
  38. PIPERACILLIN SODIUM\TAZOBACTAM SODIUM [Concomitant]
     Active Substance: PIPERACILLIN SODIUM\TAZOBACTAM SODIUM
     Indication: Febrile neutropenia
     Route: 042
     Dates: start: 20241130, end: 20241130
  39. PIPERACILLIN SODIUM\TAZOBACTAM SODIUM [Concomitant]
     Active Substance: PIPERACILLIN SODIUM\TAZOBACTAM SODIUM
     Indication: Febrile neutropenia
     Route: 042
     Dates: start: 20241201, end: 20241201
  40. PIPERACILLIN SODIUM\TAZOBACTAM SODIUM [Concomitant]
     Active Substance: PIPERACILLIN SODIUM\TAZOBACTAM SODIUM
     Indication: Febrile neutropenia
     Route: 042
     Dates: start: 20241205, end: 20241214
  41. PIPERACILLIN SODIUM\TAZOBACTAM SODIUM [Concomitant]
     Active Substance: PIPERACILLIN SODIUM\TAZOBACTAM SODIUM
     Indication: Febrile neutropenia
     Route: 042
     Dates: start: 20250103, end: 20250103
  42. PIPERACILLIN SODIUM\TAZOBACTAM SODIUM [Concomitant]
     Active Substance: PIPERACILLIN SODIUM\TAZOBACTAM SODIUM
     Indication: Febrile neutropenia
     Route: 042
     Dates: start: 20250103, end: 20250115
  43. PIPERACILLIN SODIUM\TAZOBACTAM SODIUM [Concomitant]
     Active Substance: PIPERACILLIN SODIUM\TAZOBACTAM SODIUM
     Indication: Febrile neutropenia
     Route: 042
     Dates: start: 20250223, end: 20250224
  44. PIPERACILLIN SODIUM\TAZOBACTAM SODIUM [Concomitant]
     Active Substance: PIPERACILLIN SODIUM\TAZOBACTAM SODIUM
     Indication: Febrile neutropenia
     Route: 042
     Dates: start: 20250224, end: 20250228
  45. DIMENHYDRINATE [Concomitant]
     Active Substance: DIMENHYDRINATE
     Indication: Nausea
     Dosage: PRN?IV/PO BOTH LISTED UNCLEAR
     Route: 042
     Dates: start: 20241201
  46. MEROPENEM [Concomitant]
     Active Substance: MEROPENEM
     Indication: Bacteraemia
     Route: 042
     Dates: start: 20241201, end: 20241205
  47. SENOKOT [Concomitant]
     Active Substance: SENNOSIDES
     Indication: Constipation
     Route: 048
     Dates: start: 20241205
  48. LASIX [Concomitant]
     Active Substance: FUROSEMIDE
     Indication: Postoperative care
     Route: 042
     Dates: start: 20241213, end: 20241213
  49. LASIX [Concomitant]
     Active Substance: FUROSEMIDE
     Indication: Postoperative care
     Route: 042
     Dates: start: 20250108, end: 20250108
  50. LASIX [Concomitant]
     Active Substance: FUROSEMIDE
     Indication: Postoperative care
     Route: 042
     Dates: start: 20250109, end: 20250109
  51. LASIX [Concomitant]
     Active Substance: FUROSEMIDE
     Indication: Postoperative care
     Route: 042
     Dates: start: 20250110, end: 20250111
  52. LASIX [Concomitant]
     Active Substance: FUROSEMIDE
     Indication: Postoperative care
     Route: 042
     Dates: start: 20250112, end: 20250116
  53. LASIX [Concomitant]
     Active Substance: FUROSEMIDE
     Indication: Postoperative care
     Route: 048
     Dates: start: 20250117
  54. LASIX [Concomitant]
     Active Substance: FUROSEMIDE
     Indication: Postoperative care
     Route: 042
     Dates: start: 20250222, end: 20250222
  55. LASIX [Concomitant]
     Active Substance: FUROSEMIDE
     Indication: Postoperative care
     Route: 042
     Dates: start: 20250223, end: 20250223
  56. SODIUM CHLORIDE [Concomitant]
     Active Substance: SODIUM CHLORIDE
     Indication: Prophylaxis
     Dates: start: 20250103
  57. SLOW K [Concomitant]
     Active Substance: POTASSIUM CHLORIDE
     Indication: Hypokalaemia
     Route: 048
     Dates: start: 20250106, end: 20250108
  58. SLOW K [Concomitant]
     Active Substance: POTASSIUM CHLORIDE
     Indication: Hypokalaemia
     Route: 048
     Dates: start: 20250119
  59. KCL [Concomitant]
     Active Substance: POTASSIUM CHLORIDE
     Indication: Hypokalaemia
     Route: 042
     Dates: start: 20250109, end: 20250109
  60. KCL [Concomitant]
     Active Substance: POTASSIUM CHLORIDE
     Indication: Hypokalaemia
     Route: 042
     Dates: start: 20250111, end: 20250111
  61. KCL [Concomitant]
     Active Substance: POTASSIUM CHLORIDE
     Indication: Hypokalaemia
     Route: 042
     Dates: start: 20250114, end: 20250114
  62. KCL [Concomitant]
     Active Substance: POTASSIUM CHLORIDE
     Indication: Hypokalaemia
     Route: 042
     Dates: start: 20250114, end: 20250114
  63. METOPROLOL TARTRATE [Concomitant]
     Active Substance: METOPROLOL TARTRATE
     Indication: Atrial fibrillation
     Route: 048
     Dates: end: 20250104
  64. METOPROLOL TARTRATE [Concomitant]
     Active Substance: METOPROLOL TARTRATE
     Indication: Atrial fibrillation
     Route: 048
     Dates: start: 20250104, end: 20250122
  65. METOPROLOL TARTRATE [Concomitant]
     Active Substance: METOPROLOL TARTRATE
     Indication: Atrial fibrillation
     Route: 048
     Dates: start: 20250122
  66. METFORMIN [Concomitant]
     Active Substance: METFORMIN HYDROCHLORIDE
     Indication: Diabetes mellitus
     Route: 048
     Dates: end: 20250204
  67. METFORMIN [Concomitant]
     Active Substance: METFORMIN HYDROCHLORIDE
     Indication: Diabetes mellitus
     Route: 048
     Dates: start: 20250205
  68. GRAVOL [Concomitant]
     Active Substance: DIMENHYDRINATE
     Indication: Nausea
     Route: 042
     Dates: start: 20250227, end: 20250228
  69. ATORVASTATIN [Concomitant]
     Active Substance: ATORVASTATIN
     Indication: Dyslipidaemia
     Route: 048
  70. VITAMIN D3 [Concomitant]
     Active Substance: CHOLECALCIFEROL
     Indication: Routine health maintenance
     Route: 048
  71. Insulin degludec flextouch [Concomitant]
     Indication: Diabetes mellitus
     Route: 058
  72. PSYLLIUM HUSK [Concomitant]
     Active Substance: PSYLLIUM HUSK
     Indication: Diabetes mellitus
     Dosage: 2 TBSP PRN
     Route: 048
  73. RIVAROXABAN [Concomitant]
     Active Substance: RIVAROXABAN
     Indication: Thrombosis prophylaxis
     Route: 048
     Dates: end: 20250225
  74. AZACITIDINE [Suspect]
     Active Substance: AZACITIDINE
     Indication: Acute myeloid leukaemia
     Dosage: END OF CYCLE
     Route: 065
     Dates: start: 20241216, end: 20241220
  75. AZACITIDINE [Suspect]
     Active Substance: AZACITIDINE
     Indication: Acute myeloid leukaemia
     Dosage: ADVERSE EVENT, WITHDRAWAL, ANEMIA, FEBRILE NEUTROPENIA, THROMBOCYTOPENIA, GI EFFECTS, PALLIATIVE ...
     Route: 065
     Dates: start: 20250210, end: 20250214
  76. AZACITIDINE [Suspect]
     Active Substance: AZACITIDINE
     Indication: Acute myeloid leukaemia
     Dosage: END OF CYCLE
     Route: 065
     Dates: start: 20240923, end: 20240927
  77. AZACITIDINE [Suspect]
     Active Substance: AZACITIDINE
     Indication: Acute myeloid leukaemia
     Dosage: END OF CYCLE
     Route: 065
     Dates: start: 20241001, end: 20241002
  78. AZACITIDINE [Suspect]
     Active Substance: AZACITIDINE
     Indication: Acute myeloid leukaemia
     Dosage: END OF CYCLE
     Route: 065
     Dates: start: 20241104, end: 20241108
  79. Covid 19 vaccine mRNA [Concomitant]
     Indication: COVID-19 prophylaxis
  80. Covid 19 vaccine mRNA [Concomitant]
     Indication: COVID-19 prophylaxis
  81. Covid 19 vaccine mRNA [Concomitant]
     Indication: COVID-19 prophylaxis
  82. Covid 19 vaccine mRNA [Concomitant]
     Indication: COVID-19 prophylaxis
  83. Covid 19 vaccine mRNA [Concomitant]
     Indication: COVID-19 prophylaxis
  84. Covid 19 vaccine mRNA [Concomitant]
     Indication: COVID-19 prophylaxis

REACTIONS (1)
  - Alpha haemolytic streptococcal infection [Recovered/Resolved]

NARRATIVE: CASE EVENT DATE: 20241018
